FAERS Safety Report 20138919 (Version 1)
Quarter: 2021Q4

REPORT INFORMATION
  Report Type: Report from Study
  Country: ES (occurrence: ES)
  Receive Date: 20211202
  Receipt Date: 20211202
  Transmission Date: 20220303
  Serious: Yes (Other)
  Sender: FDA-Public Use
  Company Number: ES-ROCHE-2853405

PATIENT
  Age: 49 Year
  Sex: Female

DRUGS (5)
  1. GENOXAL [Suspect]
     Active Substance: CYCLOPHOSPHAMIDE
     Indication: Prophylaxis against transplant rejection
     Dosage: ON DAYS +3 AND +4
     Route: 065
  2. BUSULFAN [Suspect]
     Active Substance: BUSULFAN
     Indication: Prophylaxis against transplant rejection
     Dosage: ON DAYS -6 TO -3)
     Route: 042
  3. FLUDARABINE [Suspect]
     Active Substance: FLUDARABINE PHOSPHATE
     Indication: Prophylaxis against transplant rejection
     Dosage: ON DAYS -6 TO -3
     Route: 065
  4. MYCOPHENOLATE MOFETIL [Suspect]
     Active Substance: MYCOPHENOLATE MOFETIL
     Indication: Prophylaxis against transplant rejection
     Route: 065
  5. RITUXIMAB [Suspect]
     Active Substance: RITUXIMAB
     Indication: Prophylaxis against transplant rejection
     Route: 042

REACTIONS (1)
  - Spinal cord disorder [Unknown]
